FAERS Safety Report 8043203-X (Version None)
Quarter: 2012Q1

REPORT INFORMATION
  Report Type: 
  Country: None (occurrence: None)
  Receive Date: 20120112
  Receipt Date: 20120105
  Transmission Date: 20120608
  Serious: Yes (Hospitalization)
  Sender: FDA-Public Use
  Company Number: US-US-EMD SERONO, INC.-7003903

PATIENT
  Sex: Female
  Weight: 90 kg

DRUGS (4)
  1. REBIF [Suspect]
     Indication: MULTIPLE SCLEROSIS
     Route: 058
     Dates: start: 20090430, end: 20100414
  2. ASPIRIN [Concomitant]
  3. ZANAFLEX [Concomitant]
     Indication: MUSCLE SPASMS
  4. BACLOFEN [Concomitant]
     Indication: MUSCLE SPASMS

REACTIONS (4)
  - BREAST CANCER [None]
  - INFLUENZA LIKE ILLNESS [None]
  - ASTHENIA [None]
  - FATIGUE [None]
